FAERS Safety Report 7784118-1 (Version None)
Quarter: 2011Q3

REPORT INFORMATION
  Report Type: 
  Country: None (occurrence: None)
  Receive Date: 20110928
  Receipt Date: 20110921
  Transmission Date: 20111222
  Serious: Yes (Other)
  Sender: FDA-Public Use
  Company Number: US-BRISTOL-MYERS SQUIBB COMPANY-16082216

PATIENT
  Age: 34 Year
  Sex: Male

DRUGS (2)
  1. ZYPREXA [Concomitant]
     Dates: start: 20110920
  2. ABILIFY [Suspect]
     Dates: start: 20110921

REACTIONS (3)
  - CONFUSIONAL STATE [None]
  - HAEMATEMESIS [None]
  - TREMOR [None]
